FAERS Safety Report 5173906-6 (Version None)
Quarter: 2006Q4

REPORT INFORMATION
  Report Type: 
  Country: None (occurrence: None)
  Receive Date: 20061214
  Receipt Date: 20061204
  Transmission Date: 20070319
  Serious: Yes (Hospitalization, Other)
  Sender: FDA-Public Use
  Company Number: 2006AC02273

PATIENT
  Age: 87 Year
  Sex: Female

DRUGS (5)
  1. TAMOXIFEN CITRATE [Suspect]
     Indication: BREAST CANCER
     Route: 048
  2. AMOXICILLIN + CLAVULANATE POTASSIUM [Suspect]
     Indication: INFECTED SKIN ULCER
  3. ATENOLOL [Concomitant]
  4. BENDROFLUMETHAZIDE [Concomitant]
  5. MELOXICAM [Concomitant]

REACTIONS (1)
  - LEUKOCYTOCLASTIC VASCULITIS [None]
